FAERS Safety Report 6538761-8 (Version None)
Quarter: 2010Q1

REPORT INFORMATION
  Report Type: 
  Country: None (occurrence: None)
  Receive Date: 20100114
  Receipt Date: 20100114
  Transmission Date: 20100710
  Serious: Yes (Other)
  Sender: FDA-Public Use
  Company Number: None

PATIENT
  Age: 60 Year
  Sex: Male
  Weight: 95.709 kg

DRUGS (1)
  1. CRESTOR [Suspect]
     Indication: BLOOD CHOLESTEROL INCREASED
     Dosage: USUAL 1/DAY PO
     Route: 048
     Dates: start: 20091111, end: 20091126

REACTIONS (13)
  - ABDOMINAL PAIN UPPER [None]
  - AMNESIA [None]
  - ARTHRALGIA [None]
  - DIZZINESS [None]
  - EUSTACHIAN TUBE DISORDER [None]
  - FATIGUE [None]
  - FOOD POISONING [None]
  - INFLAMMATION [None]
  - MIDDLE EAR EFFUSION [None]
  - MYALGIA [None]
  - NAUSEA [None]
  - PYREXIA [None]
  - TINNITUS [None]
